FAERS Safety Report 10202928 (Version 1)
Quarter: 2014Q2

REPORT INFORMATION
  Report Type: Spontaneous
  Country: US (occurrence: US)
  Receive Date: 20140522
  Receipt Date: 20140522
  Transmission Date: 20141212
  Serious: No
  Sender: FDA-Public Use
  Company Number: US-SA-2014SA047075

PATIENT
  Sex: 0

DRUGS (3)
  1. LANTUS [Suspect]
     Indication: DIABETES MELLITUS
     Route: 065
  2. NOVOLOG [Concomitant]
     Dosage: DOSE: 10 OR 12UNITS
  3. LEVEMIR [Concomitant]
     Dosage: DOSE: 25 TO 30UNITS

REACTIONS (1)
  - Arthropod sting [Unknown]
